FAERS Safety Report 8585435-8 (Version None)
Quarter: 2012Q3

REPORT INFORMATION
  Report Type: 
  Country: None (occurrence: None)
  Receive Date: 20120810
  Receipt Date: 20120809
  Transmission Date: 20120928
  Serious: Yes (Death)
  Sender: FDA-Public Use
  Company Number: CO-ABBOTT-12P-036-0966682-00

PATIENT
  Sex: Male

DRUGS (1)
  1. HUMIRA [Suspect]
     Indication: RHEUMATOID ARTHRITIS
     Route: 058
     Dates: start: 20110706, end: 20120704

REACTIONS (4)
  - COUGH [None]
  - RESPIRATORY DISTRESS [None]
  - VIRAL INFECTION [None]
  - CARDIO-RESPIRATORY ARREST [None]
